FAERS Safety Report 23554254 (Version 1)
Quarter: 2024Q1

REPORT INFORMATION
  Report Type: Report from Study
  Country: US (occurrence: US)
  Receive Date: 20240222
  Receipt Date: 20240222
  Transmission Date: 20240409
  Serious: No
  Sender: FDA-Public Use
  Company Number: US-BIOGEN-2024BI01251366

PATIENT
  Sex: Female

DRUGS (1)
  1. ZURZUVAE [Suspect]
     Active Substance: ZURANOLONE
     Indication: Perinatal depression
     Route: 050

REACTIONS (11)
  - Brain fog [Unknown]
  - Dyspnoea [Unknown]
  - Throat tightness [Unknown]
  - Paraesthesia [Unknown]
  - Headache [Unknown]
  - Mobility decreased [Unknown]
  - Product dose omission issue [Unknown]
  - Anxiety [Unknown]
  - Somnolence [Unknown]
  - Nausea [Unknown]
  - Dizziness [Unknown]
